FAERS Safety Report 19228586 (Version 1)
Quarter: 2021Q2

REPORT INFORMATION
  Report Type: Spontaneous
  Country: US (occurrence: US)
  Receive Date: 20210506
  Receipt Date: 20210506
  Transmission Date: 20210717
  Serious: No
  Sender: FDA-Public Use
  Company Number: US-ROCHE-2746246

PATIENT
  Sex: Female

DRUGS (1)
  1. ESBRIET [Suspect]
     Active Substance: PIRFENIDONE
     Indication: IDIOPATHIC PULMONARY FIBROSIS
     Dosage: 1 TABLET 3 TIME DAILY 1 WEEK THEN 2 TABLETS 3 TIME DAILY 1 WEEK THEN 3 TABLETS 3 TIMES DAILY WITH ME
     Route: 048
     Dates: start: 202012

REACTIONS (2)
  - Nausea [Unknown]
  - Abdominal pain upper [Unknown]
